FAERS Safety Report 17088940 (Version 10)
Quarter: 2025Q1

REPORT INFORMATION
  Report Type: Report from Study
  Country: US (occurrence: US)
  Receive Date: 20191128
  Receipt Date: 20250311
  Transmission Date: 20250409
  Serious: Yes (Hospitalization, Other)
  Sender: TAKEDA
  Company Number: US-SHIRE-US201940303

PATIENT
  Sex: Male
  Weight: 124 kg

DRUGS (42)
  1. HUMAN IMMUNOGLOBULIN G [Suspect]
     Active Substance: HUMAN IMMUNOGLOBULIN G
     Indication: Immunodeficiency common variable
     Dosage: 30 GRAM, Q2WEEKS
     Dates: start: 20180308
  2. HUMAN IMMUNOGLOBULIN G [Suspect]
     Active Substance: HUMAN IMMUNOGLOBULIN G
     Dosage: 30 GRAM, Q2WEEKS
     Dates: start: 20180309
  3. HUMAN IMMUNOGLOBULIN G [Suspect]
     Active Substance: HUMAN IMMUNOGLOBULIN G
  4. HUMAN IMMUNOGLOBULIN G [Suspect]
     Active Substance: HUMAN IMMUNOGLOBULIN G
     Dosage: 30 GRAM, Q2WEEKS
  5. ACETAMINOPHEN [Concomitant]
     Active Substance: ACETAMINOPHEN
  6. DIPHENHYDRAMINE [Concomitant]
     Active Substance: DIPHENHYDRAMINE
  7. LIDOCAINE [Concomitant]
     Active Substance: LIDOCAINE
  8. EPINEPHRINE [Concomitant]
     Active Substance: EPINEPHRINE
  9. PENICILLIN [Concomitant]
     Active Substance: PENICILLIN
  10. THIAMINE HYDROCHLORIDE [Concomitant]
     Active Substance: THIAMINE HYDROCHLORIDE
  11. CRESTOR [Concomitant]
     Active Substance: ROSUVASTATIN CALCIUM
  12. ALFUZOSIN [Concomitant]
     Active Substance: ALFUZOSIN
  13. HUMULIN R [Concomitant]
     Active Substance: INSULIN HUMAN
  14. SINGULAIR [Concomitant]
     Active Substance: MONTELUKAST SODIUM
  15. COREG [Concomitant]
     Active Substance: CARVEDILOL
  16. LOSARTAN [Concomitant]
     Active Substance: LOSARTAN
  17. LITHIUM [Concomitant]
     Active Substance: LITHIUM
  18. DEPAKOTE [Concomitant]
     Active Substance: DIVALPROEX SODIUM
  19. SYNTHROID [Concomitant]
     Active Substance: LEVOTHYROXINE SODIUM
  20. MIRTAZAPINE [Concomitant]
     Active Substance: MIRTAZAPINE
  21. ISOSORBIDE [Concomitant]
     Active Substance: ISOSORBIDE
  22. VICTOZA [Concomitant]
     Active Substance: LIRAGLUTIDE
  23. SEROQUEL [Concomitant]
     Active Substance: QUETIAPINE FUMARATE
  24. TERAZOSIN [Concomitant]
     Active Substance: TERAZOSIN HYDROCHLORIDE
  25. OMEPRAZOLE [Concomitant]
     Active Substance: OMEPRAZOLE
  26. LASIX [Concomitant]
     Active Substance: FUROSEMIDE
  27. FLAXSEED [Concomitant]
     Active Substance: FLAX SEED
  28. NITROGLYCERIN [Concomitant]
     Active Substance: NITROGLYCERIN
  29. RANEXA [Concomitant]
     Active Substance: RANOLAZINE
  30. POTASSIUM [Concomitant]
     Active Substance: POTASSIUM
  31. FISH OIL [Concomitant]
     Active Substance: FISH OIL
  32. SEROQUEL XR [Concomitant]
     Active Substance: QUETIAPINE FUMARATE
  33. VITAMIN B [Concomitant]
     Active Substance: VITAMIN B
  34. PENICILLIN V POTASSIUM [Concomitant]
     Active Substance: PENICILLIN V POTASSIUM
  35. POTASSIUM CHLORIDE [Concomitant]
     Active Substance: POTASSIUM CHLORIDE
  36. LITHIUM CARBONATE [Concomitant]
     Active Substance: LITHIUM CARBONATE
  37. ISOSORBIDE MONONITRATE [Concomitant]
     Active Substance: ISOSORBIDE MONONITRATE
  38. TERAZOSIN HYDROCHLORIDE [Concomitant]
     Active Substance: TERAZOSIN HYDROCHLORIDE
  39. LOSARTAN POTASSIUM [Concomitant]
     Active Substance: LOSARTAN POTASSIUM
  40. ALFUZOSIN HYDROCHLORIDE [Concomitant]
     Active Substance: ALFUZOSIN HYDROCHLORIDE
  41. DIPHENHYDRAMINE HYDROCHLORIDE [Concomitant]
     Active Substance: DIPHENHYDRAMINE HYDROCHLORIDE
  42. VITAMINS [Concomitant]
     Active Substance: VITAMINS

REACTIONS (5)
  - Cardiac disorder [Unknown]
  - Pneumonia [Unknown]
  - COVID-19 [Unknown]
  - Inappropriate schedule of product administration [Unknown]
  - Product dose omission issue [Unknown]
